FAERS Safety Report 8176057-1 (Version None)
Quarter: 2012Q1

REPORT INFORMATION
  Report Type: 
  Country: None (occurrence: None)
  Receive Date: 20120227
  Receipt Date: 20120227
  Transmission Date: 20120608
  Serious: No
  Sender: FDA-Public Use
  Company Number: None

PATIENT
  Age: 75 Year
  Sex: Male
  Weight: 65.318 kg

DRUGS (1)
  1. DEPAKOTE ER [Suspect]
     Indication: CONVULSION
     Dosage: DEPAKOTE ER 500MG PO
     Route: 048
     Dates: start: 20110701

REACTIONS (2)
  - DYSSTASIA [None]
  - PRODUCT FORMULATION ISSUE [None]
